FAERS Safety Report 15655015 (Version 1)
Quarter: 2018Q4

REPORT INFORMATION
  Report Type: Other
  Country: US (occurrence: US)
  Receive Date: 20181126
  Receipt Date: 20181126
  Transmission Date: 20190205
  Serious: Yes (Death)
  Sender: FDA-Public Use
  Company Number: US-KNIGHT THERAPEUTICS (USA) INC.-2059254

PATIENT
  Age: 69 Year
  Sex: Female

DRUGS (6)
  1. PENTAMIDINE [Suspect]
     Active Substance: PENTAMIDINE
  2. FLUCONAZOLE. [Suspect]
     Active Substance: FLUCONAZOLE
  3. FLUCYTOSINE. [Suspect]
     Active Substance: FLUCYTOSINE
  4. AZITHROMYCIN ANHYDROUS. [Suspect]
     Active Substance: AZITHROMYCIN ANHYDROUS
  5. IMPAVIDO [Suspect]
     Active Substance: MILTEFOSINE
     Indication: BALAMUTHIA INFECTION
     Route: 048
  6. SULFADIAZINE. [Suspect]
     Active Substance: SULFADIAZINE

REACTIONS (2)
  - Drug ineffective for unapproved indication [Fatal]
  - Off label use [None]
